FAERS Safety Report 6537497-7 (Version None)
Quarter: 2010Q1

REPORT INFORMATION
  Report Type: 
  Country: None (occurrence: None)
  Receive Date: 20100114
  Receipt Date: 20090123
  Transmission Date: 20100710
  Serious: No
  Sender: FDA-Public Use
  Company Number: US-BAYER-200812238BCC

PATIENT
  Age: 66 Year
  Sex: Male
  Weight: 107 kg

DRUGS (4)
  1. ALEVE (CAPLET) [Suspect]
     Indication: NASOPHARYNGITIS
     Dosage: TOTAL DAILY DOSE: 2 DF  UNIT DOSE: 1 DF
     Dates: start: 20081201, end: 20081201
  2. ASPIRIN [Concomitant]
  3. DIOVAN [Concomitant]
  4. COPAXONE [Concomitant]

REACTIONS (2)
  - DYSURIA [None]
  - INSOMNIA [None]
